FAERS Safety Report 8870854 (Version 1)
Quarter: 2012Q4

REPORT INFORMATION
  Report Type: 
  Country: US (occurrence: US)
  Receive Date: 20121026
  Receipt Date: 20121026
  Transmission Date: 20130627
  Serious: No
  Sender: FDA-Public Use
  Company Number: US-AMGEN-USASP2012046865

PATIENT
  Age: 80 Year
  Sex: Female
  Weight: 90.25 kg

DRUGS (6)
  1. ENBREL [Suspect]
     Indication: PRODUCT USED FOR UNKNOWN INDICATION
     Dosage: 25 mg, qwk
     Route: 058
  2. SYNTHROID [Concomitant]
     Dosage: 88 mcg
  3. VITAMIN E                          /00110501/ [Concomitant]
     Dosage: 200 unit, UNK
  4. VITAMIN D /00107901/ [Concomitant]
     Dosage: 1000 unit, UNK
  5. FOLIC ACID [Concomitant]
     Dosage: UNK
  6. MULTIVITE                          /00067501/ [Concomitant]
     Dosage: UNK

REACTIONS (2)
  - Back pain [Unknown]
  - Back injury [Unknown]
